FAERS Safety Report 5856314-1 (Version None)
Quarter: 2008Q3

REPORT INFORMATION
  Report Type: 
  Country: None (occurrence: None)
  Receive Date: 20080821
  Receipt Date: 20080812
  Transmission Date: 20090109
  Serious: Yes (Death)
  Sender: FDA-Public Use
  Company Number: GXKR2008NL07616

PATIENT
  Age: 59 Year
  Sex: Male

DRUGS (9)
  1. PREDNISONE [Suspect]
     Indication: ANGIOIMMUNOBLASTIC T-CELL LYMPHOMA
     Dosage: 6 CHOP-CYCLES, 14 DAY INTERVALS,
     Dates: end: 20060401
  2. ALEMTUZUMAB (ALEMTUZUMAB, CAMPATH-1H) [Suspect]
     Indication: ANGIOIMMUNOBLASTIC T-CELL LYMPHOMA
     Dosage: 30 MG X 3 DOSES PER CYCLE, 14 DAY INTERVALS,
     Dates: end: 20060401
  3. CYCLOPHOSPHAMIDE [Suspect]
     Indication: ANGIOIMMUNOBLASTIC T-CELL LYMPHOMA
     Dosage: 6 CHOP-CYCLES, 14 DAY INTERVALS,
     Dates: end: 20060401
  4. ADRIAMYCIN PFS [Suspect]
     Indication: ANGIOIMMUNOBLASTIC T-CELL LYMPHOMA
     Dosage: 6 CHOP-CYCLES, 14 DAY INTERVALS,
     Dates: end: 20060401
  5. ONCOVIN [Suspect]
     Indication: ANGIOIMMUNOBLASTIC T-CELL LYMPHOMA
     Dosage: 6 CHOP-CYCLES, 14 DAY INTERVALS,
     Dates: end: 20060401
  6. CO-TRIMOXAZOLE (CO-TRIMOXAZOLE) [Concomitant]
  7. VALACYCLOVIR [Concomitant]
  8. FLUCONAZOLE [Concomitant]
  9. FOSCARNET [Concomitant]

REACTIONS (9)
  - ANGIOIMMUNOBLASTIC T-CELL LYMPHOMA [None]
  - ASCITES [None]
  - DYSPNOEA [None]
  - LYMPHADENOPATHY [None]
  - LYMPHOPROLIFERATIVE DISORDER [None]
  - PLEURAL EFFUSION [None]
  - PYREXIA [None]
  - SKIN NODULE [None]
  - SPLENOMEGALY [None]
